FAERS Safety Report 22737844 (Version 2)
Quarter: 2023Q4

REPORT INFORMATION
  Report Type: Report from Study
  Country: US (occurrence: US)
  Receive Date: 20230721
  Receipt Date: 20231031
  Transmission Date: 20240110
  Serious: Yes (Other)
  Sender: FDA-Public Use
  Company Number: US-ABBVIE-5335757

PATIENT
  Sex: Female
  Weight: 65.771 kg

DRUGS (1)
  1. HUMIRA [Suspect]
     Active Substance: ADALIMUMAB
     Indication: Psoriatic arthropathy
     Dosage: FORM STRENGTH WAS 40 MILLIGRAM
     Route: 058
     Dates: start: 20230711, end: 20230919

REACTIONS (11)
  - Thyrotoxic crisis [Recovered/Resolved]
  - Hot flush [Recovered/Resolved]
  - Feeling jittery [Unknown]
  - Psoriatic arthropathy [Recovered/Resolved]
  - Lymphadenopathy [Unknown]
  - Feeling cold [Recovered/Resolved]
  - Lacrimation increased [Unknown]
  - Hyperventilation [Unknown]
  - Chills [Unknown]
  - Photophobia [Unknown]
  - Myalgia [Unknown]

NARRATIVE: CASE EVENT DATE: 20230101
